FAERS Safety Report 9271127 (Version 1)
Quarter: 2013Q2

REPORT INFORMATION
  Report Type: Report from Study
  Country: VE (occurrence: VE)
  Receive Date: 20130506
  Receipt Date: 20130506
  Transmission Date: 20140414
  Serious: Yes (Hospitalization)
  Sender: FDA-Public Use
  Company Number: PHHY2013VE043731

PATIENT
  Age: 70 Year
  Sex: Male

DRUGS (6)
  1. TASIGNA [Suspect]
     Indication: CHRONIC MYELOID LEUKAEMIA
     Dosage: 600 MG, DAILY
     Route: 048
     Dates: start: 201210
  2. OMEPRAZOLE [Concomitant]
     Dosage: 20 MG, DAILY
     Route: 048
  3. STILNOX [Concomitant]
     Indication: INSOMNIA
     Dosage: 10 MG, DAILY
     Route: 048
     Dates: start: 200404
  4. NATRILIX [Concomitant]
     Indication: HYPERTENSION
     Dosage: 2.5 MG, DAILY
     Route: 048
  5. METFORMIN [Concomitant]
     Indication: HYPERGLYCAEMIA
     Dates: start: 2010
  6. GLIMEPIRIDE [Concomitant]
     Indication: HYPERGLYCAEMIA
     Dates: start: 2010

REACTIONS (3)
  - Pruritus [Recovering/Resolving]
  - Abdominal pain upper [Recovered/Resolved]
  - Headache [Recovered/Resolved]
